FAERS Safety Report 9585868 (Version 1)
Quarter: 2013Q3

REPORT INFORMATION
  Report Type: Spontaneous
  Country: US (occurrence: None)
  Receive Date: 20130926
  Receipt Date: 20130926
  Transmission Date: 20140515
  Serious: No
  Sender: FDA-Public Use
  Company Number: 2012-01193

PATIENT
  Age: 2 Year
  Sex: Female

DRUGS (2)
  1. VALPROIC ACID [Suspect]
     Indication: CONVULSION
  2. CARBAMAZEPINE [Concomitant]

REACTIONS (1)
  - Convulsion [None]
